FAERS Safety Report 15319528 (Version 5)
Quarter: 2018Q3

REPORT INFORMATION
  Report Type: Spontaneous
  Country: AU (occurrence: AU)
  Receive Date: 20180827
  Receipt Date: 20180911
  Transmission Date: 20181010
  Serious: Yes (Hospitalization, Other)
  Sender: FDA-Public Use
  Company Number: AU-CONCORDIA PHARMACEUTICALS INC.-GSH201808-003071

PATIENT
  Age: 51 Year
  Sex: Female

DRUGS (6)
  1. PARNATE [Suspect]
     Active Substance: TRANYLCYPROMINE SULFATE
     Indication: BIPOLAR DISORDER
     Dosage: 50 MG, QD, IN THE MORNING?THE PATIENT HAD BEEN ON IT FOR MORE THAN 20 YEARS
     Route: 065
  2. VALPROATE SODIUM. [Concomitant]
     Active Substance: VALPROATE SODIUM
     Indication: HYPOTHYROIDISM
     Dosage: 1500 MG MORNING AND 1000 MG AT NIGHT
  3. PARNATE [Suspect]
     Active Substance: TRANYLCYPROMINE SULFATE
     Indication: HYPOTHYROIDISM
  4. VALPROATE SODIUM. [Concomitant]
     Active Substance: VALPROATE SODIUM
     Indication: BIPOLAR DISORDER
  5. THYROXINE [Concomitant]
     Active Substance: LEVOTHYROXINE
     Indication: BIPOLAR DISORDER
     Dosage: 100 MCG
  6. THYROXINE [Concomitant]
     Active Substance: LEVOTHYROXINE
     Indication: HYPOTHYROIDISM

REACTIONS (4)
  - Hypertensive crisis [Unknown]
  - Cardiomyopathy [Unknown]
  - Acute myocardial infarction [Unknown]
  - Food interaction [Unknown]
